FAERS Safety Report 21729165 (Version 2)
Quarter: 2022Q4

REPORT INFORMATION
  Report Type: Spontaneous
  Country: US (occurrence: None)
  Receive Date: 20221214
  Receipt Date: 20221220
  Transmission Date: 20230113
  Serious: Yes (Hospitalization, Other)
  Sender: FDA-Public Use
  Company Number: 2022A403177

PATIENT
  Age: 60 Year
  Sex: Female

DRUGS (1)
  1. DURVALUMAB [Suspect]
     Active Substance: DURVALUMAB
     Indication: Lung adenocarcinoma stage III
     Dosage: 10 M/KG
     Route: 042

REACTIONS (3)
  - Myasthenia gravis [Recovering/Resolving]
  - Morphoea [Recovering/Resolving]
  - Vitiligo [Recovering/Resolving]
